FAERS Safety Report 24148331 (Version 1)
Quarter: 2024Q3

REPORT INFORMATION
  Report Type: Spontaneous
  Country: US (occurrence: None)
  Receive Date: 20240728
  Receipt Date: 20240728
  Transmission Date: 20241016
  Serious: Yes (Other)
  Sender: Public
  Company Number: None

PATIENT
  Age: 32 Year
  Sex: Female

DRUGS (1)
  1. DEXAMETHASONE [Suspect]
     Active Substance: DEXAMETHASONE
     Indication: Chronic sinusitis
     Dates: start: 20240722, end: 20240728

REACTIONS (4)
  - Mood altered [None]
  - Psychotic disorder [None]
  - Irritability [None]
  - Suicidal ideation [None]

NARRATIVE: CASE EVENT DATE: 20240728
